FAERS Safety Report 7676736-6 (Version None)
Quarter: 2011Q3

REPORT INFORMATION
  Report Type: 
  Country: None (occurrence: None)
  Receive Date: 20110811
  Receipt Date: 20110801
  Transmission Date: 20111222
  Serious: Yes (Other)
  Sender: FDA-Public Use
  Company Number: CA-BRISTOL-MYERS SQUIBB COMPANY-15938657

PATIENT
  Age: 68 Year
  Sex: Male

DRUGS (3)
  1. HEPARIN SODIUM [Suspect]
  2. WARFARIN SODIUM [Suspect]
  3. DALTEPARIN SODIUM [Suspect]
     Dosage: 1 DOSAGE FORM = 12000 UNITS
     Route: 058

REACTIONS (5)
  - HEPARIN-INDUCED THROMBOCYTOPENIA [None]
  - PULMONARY OEDEMA [None]
  - ANAPHYLACTOID REACTION [None]
  - EMBOLISM VENOUS [None]
  - INTERNATIONAL NORMALISED RATIO DECREASED [None]
